FAERS Safety Report 6366650-0 (Version None)
Quarter: 2009Q3

REPORT INFORMATION
  Report Type: 
  Country: None (occurrence: None)
  Receive Date: 20090921
  Receipt Date: 20090910
  Transmission Date: 20100115
  Serious: Yes (Hospitalization, Other)
  Sender: FDA-Public Use
  Company Number: PHHY2009DE38646

PATIENT
  Age: 59 Year
  Sex: Male

DRUGS (3)
  1. CYCLOSPORINE [Suspect]
     Indication: LIVER TRANSPLANT
  2. MYCOPHENOLATE MOFETIL [Suspect]
     Indication: LIVER TRANSPLANT
  3. PREDNISONE [Suspect]
     Indication: LIVER TRANSPLANT

REACTIONS (9)
  - BILIARY ISCHAEMIA [None]
  - CHOLANGITIS [None]
  - HEPATIC MASS [None]
  - HEPATIC NEOPLASM MALIGNANT RESECTABLE [None]
  - HEPATIC STEATOSIS [None]
  - LIVER OPERATION [None]
  - POST PROCEDURAL BILE LEAK [None]
  - STENT PLACEMENT [None]
  - SURGERY [None]
